FAERS Safety Report 4372312-1 (Version None)
Quarter: 2004Q2

REPORT INFORMATION
  Report Type: 
  Country: None (occurrence: None)
  Receive Date: 20040602
  Receipt Date: 20040521
  Transmission Date: 20050107
  Serious: Yes (Hospitalization)
  Sender: FDA-Public Use
  Company Number: 04P-087-0261690-00

PATIENT
  Age: 80 Year
  Sex: Female

DRUGS (8)
  1. PROSOM [Suspect]
     Indication: INSOMNIA
     Dosage: 1 IN 1 D, PER ORAL
     Route: 048
     Dates: start: 20040418, end: 20040423
  2. QUAZEPAM [Suspect]
     Indication: INSOMNIA
     Dosage: 0.5 TABLET, 1 IN 1 D, PER ORAL
     Route: 048
     Dates: start: 20040415, end: 20040417
  3. ATORVASTATIN CALCIUM [Concomitant]
  4. TOSUFLOXACIN TOSILATE [Concomitant]
  5. FLUVOXAMINE [Concomitant]
  6. MAGNESIUM OXIDE [Concomitant]
  7. NICERGOLINE [Concomitant]
  8. AMLODIPINE BESYLATE [Concomitant]

REACTIONS (9)
  - BILIARY TRACT DISORDER [None]
  - BLOOD ALKALINE PHOSPHATASE INCREASED [None]
  - C-REACTIVE PROTEIN INCREASED [None]
  - DECREASED APPETITE [None]
  - GAMMA-GLUTAMYLTRANSFERASE INCREASED [None]
  - HEPATIC ENZYME INCREASED [None]
  - LETHARGY [None]
  - MALAISE [None]
  - PYREXIA [None]
